FAERS Safety Report 9681226 (Version 1)
Quarter: 2013Q4

REPORT INFORMATION
  Report Type: Spontaneous
  Country: US (occurrence: US)
  Receive Date: 20131111
  Receipt Date: 20131111
  Transmission Date: 20140711
  Serious: Yes (Hospitalization)
  Sender: FDA-Public Use
  Company Number: US-BAYER-2013-136173

PATIENT
  Age: 17 Year
  Sex: Female
  Weight: 54.88 kg

DRUGS (13)
  1. YASMIN [Suspect]
  2. DIFFERIN [Concomitant]
     Dosage: 0.1 %, UNK
     Route: 061
     Dates: start: 20060905
  3. CIPRO [Concomitant]
     Dosage: 250 MG, UNK
     Route: 048
     Dates: start: 20060920
  4. DUAC [Concomitant]
     Route: 061
  5. HYDROCODONE W/APAP [Concomitant]
     Dosage: 5-500 MG
     Route: 048
     Dates: start: 20061102
  6. VERSED [Concomitant]
     Dosage: 2 MG, UNK
     Route: 042
     Dates: start: 20060914
  7. FENTANYL [Concomitant]
     Dosage: 25 ?G, UNK
     Route: 042
     Dates: start: 20061114
  8. FLONASE [Concomitant]
     Route: 045
  9. ALBUTEROL [Concomitant]
     Route: 045
  10. DARVOCET [Concomitant]
     Dosage: 1 A FEW TIMES A DAY PRN
     Route: 048
  11. CYMBALTA [Concomitant]
     Dosage: 60 MG, DAILY
  12. WELLBUTRIN [Concomitant]
     Dosage: 150 MG, DAILY
     Route: 048
  13. ALEVE LIQUID GELS [Concomitant]
     Dosage: 500 MG, BID
     Route: 048

REACTIONS (1)
  - Pulmonary embolism [Recovered/Resolved]
